FAERS Safety Report 24052046 (Version 1)
Quarter: 2024Q3

REPORT INFORMATION
  Report Type: Spontaneous
  Country: US (occurrence: US)
  Receive Date: 20240704
  Receipt Date: 20240704
  Transmission Date: 20241016
  Serious: Yes (Other)
  Sender: SANDOZ
  Company Number: US-SANDOZ-SDZ2024US062502

PATIENT
  Age: 56 Year
  Sex: Male

DRUGS (3)
  1. HEPARIN [Suspect]
     Active Substance: HEPARIN SODIUM
     Indication: Product used for unknown indication
     Dosage: 400 U/KG (A TOTAL OF 26,000 U) (UNFRACTIONATED HEPARIN)
     Route: 040
  2. ISOFLURANE [Concomitant]
     Active Substance: ISOFLURANE
     Indication: Maintenance of anaesthesia
     Dosage: VIA THE CPB CIRCUIT
     Route: 065
  3. PROPOFOL [Concomitant]
     Active Substance: PROPOFOL
     Indication: Maintenance of anaesthesia
     Dosage: 30 UG/KG/MIN
     Route: 065

REACTIONS (1)
  - Hyperkalaemia [Recovered/Resolved]
